FAERS Safety Report 8308032-8 (Version None)
Quarter: 2012Q2

REPORT INFORMATION
  Report Type: 
  Country: None (occurrence: None)
  Receive Date: 20120424
  Receipt Date: 20120417
  Transmission Date: 20120825
  Serious: Yes (Death, Other)
  Sender: FDA-Public Use
  Company Number: FR-JNJFOC-20120408076

PATIENT

DRUGS (40)
  1. DOXORUBICIN HCL [Suspect]
     Route: 042
  2. VINCRISTINE [Suspect]
     Route: 065
  3. PIXANTRONE [Suspect]
     Route: 065
  4. VINCRISTINE [Suspect]
     Indication: DIFFUSE LARGE B-CELL LYMPHOMA
     Route: 065
  5. PREDNISONE TAB [Suspect]
     Route: 065
  6. CYCLOPHOSPHAMIDE [Suspect]
     Route: 065
  7. PIXANTRONE [Suspect]
     Route: 065
  8. VINCRISTINE [Suspect]
     Route: 065
  9. DOXORUBICIN HCL [Suspect]
     Indication: DIFFUSE LARGE B-CELL LYMPHOMA
     Route: 042
  10. VINCRISTINE [Suspect]
     Route: 065
  11. RITUXIMAB [Suspect]
     Indication: DIFFUSE LARGE B-CELL LYMPHOMA
     Route: 065
  12. RITUXIMAB [Suspect]
     Route: 065
  13. RITUXIMAB [Suspect]
     Route: 065
  14. DOXORUBICIN HCL [Suspect]
     Route: 042
  15. DOXORUBICIN HCL [Suspect]
     Route: 042
  16. CYCLOPHOSPHAMIDE [Suspect]
     Route: 065
  17. PREDNISONE TAB [Suspect]
     Route: 065
  18. PREDNISONE TAB [Suspect]
     Route: 065
  19. CYCLOPHOSPHAMIDE [Suspect]
     Indication: DIFFUSE LARGE B-CELL LYMPHOMA
     Route: 065
  20. VINCRISTINE [Suspect]
     Route: 065
  21. RITUXIMAB [Suspect]
     Route: 065
  22. CYCLOPHOSPHAMIDE [Suspect]
     Route: 065
  23. PIXANTRONE [Suspect]
     Route: 065
  24. PREDNISONE TAB [Suspect]
     Route: 065
  25. CYCLOPHOSPHAMIDE [Suspect]
     Route: 065
  26. CYCLOPHOSPHAMIDE [Suspect]
     Route: 065
  27. PREDNISONE TAB [Suspect]
     Indication: DIFFUSE LARGE B-CELL LYMPHOMA
     Route: 065
  28. PREDNISONE TAB [Suspect]
     Route: 065
  29. PIXANTRONE [Suspect]
     Indication: DIFFUSE LARGE B-CELL LYMPHOMA
     Route: 065
  30. VINCRISTINE [Suspect]
     Route: 065
  31. RITUXIMAB [Suspect]
     Route: 065
  32. VINCRISTINE [Suspect]
     Route: 065
  33. RITUXIMAB [Suspect]
     Route: 065
  34. PREDNISONE TAB [Suspect]
     Route: 065
  35. RITUXIMAB [Suspect]
     Route: 065
  36. CYCLOPHOSPHAMIDE [Suspect]
     Route: 065
  37. CYCLOPHOSPHAMIDE [Suspect]
     Route: 065
  38. VINCRISTINE [Suspect]
     Route: 065
  39. PREDNISONE TAB [Suspect]
     Route: 065
  40. RITUXIMAB [Suspect]
     Route: 065

REACTIONS (9)
  - STOMATITIS [None]
  - EJECTION FRACTION DECREASED [None]
  - INFECTION [None]
  - FEBRILE NEUTROPENIA [None]
  - THROMBOCYTOPENIA [None]
  - CARDIAC FAILURE CONGESTIVE [None]
  - DIFFUSE LARGE B-CELL LYMPHOMA [None]
  - TROPONIN INCREASED [None]
  - NEUTROPENIA [None]
